FAERS Safety Report 20112166 (Version 1)
Quarter: 2021Q4

REPORT INFORMATION
  Report Type: Report from Study
  Country: IL (occurrence: None)
  Receive Date: 20211125
  Receipt Date: 20211125
  Transmission Date: 20220303
  Serious: Yes (Other)
  Sender: FDA-Public Use
  Company Number: IL-Merck Healthcare KGaA-9281308

PATIENT
  Age: 30 Year
  Sex: Female

DRUGS (1)
  1. REBIF [Suspect]
     Active Substance: INTERFERON BETA-1A
     Indication: Product used for unknown indication
     Route: 058
     Dates: start: 20120726, end: 202104

REACTIONS (8)
  - Complication of pregnancy [Unknown]
  - Gestational diabetes [Unknown]
  - Amniotic fluid volume decreased [Unknown]
  - Breech presentation [Unknown]
  - Premature delivery [Recovered/Resolved]
  - Gestational hypertension [Unknown]
  - Maternal exposure during pregnancy [Recovered/Resolved]
  - Normal newborn [Recovered/Resolved]

NARRATIVE: CASE EVENT DATE: 20210101
